FAERS Safety Report 25468035 (Version 3)
Quarter: 2025Q3

REPORT INFORMATION
  Report Type: Spontaneous
  Country: US (occurrence: US)
  Receive Date: 20250623
  Receipt Date: 20250708
  Transmission Date: 20251020
  Serious: No
  Sender: PFIZER
  Company Number: US-PFIZER INC-202500124266

PATIENT
  Sex: Male

DRUGS (2)
  1. SOMATROPIN [Suspect]
     Active Substance: SOMATROPIN
  2. SOMATROPIN [Suspect]
     Active Substance: SOMATROPIN

REACTIONS (1)
  - Device leakage [Unknown]
